FAERS Safety Report 8296532-9 (Version None)
Quarter: 2012Q2

REPORT INFORMATION
  Report Type: 
  Country: None (occurrence: None)
  Receive Date: 20120418
  Receipt Date: 20120412
  Transmission Date: 20120825
  Serious: Yes (Hospitalization, Other)
  Sender: FDA-Public Use
  Company Number: US-MERCK-1109USA01764

PATIENT
  Age: 54 Year
  Sex: Female

DRUGS (7)
  1. FOSAMAX [Suspect]
     Route: 048
     Dates: start: 20080101, end: 20101001
  2. MIACALCIN [Concomitant]
     Indication: OSTEOPOROSIS
     Route: 065
  3. VITAMINS (UNSPECIFIED) [Concomitant]
     Route: 065
     Dates: start: 20000101
  4. HORMONES (UNSPECIFIED) [Concomitant]
     Route: 065
     Dates: start: 19960101, end: 20110101
  5. FOSAMAX [Suspect]
     Indication: OSTEOPOROSIS
     Route: 048
     Dates: start: 20020101, end: 20050101
  6. FOSAMAX [Suspect]
     Route: 048
     Dates: start: 20050101, end: 20080101
  7. LEVOTHYROXINE SODIUM [Concomitant]
     Indication: HYPOTHYROIDISM
     Route: 065
     Dates: start: 19680101

REACTIONS (13)
  - FRACTURE DELAYED UNION [None]
  - PATELLA FRACTURE [None]
  - FIBULA FRACTURE [None]
  - CATARACT [None]
  - RETINAL HAEMORRHAGE [None]
  - FALL [None]
  - LOW TURNOVER OSTEOPATHY [None]
  - MUSCULOSKELETAL DISORDER [None]
  - MEMORY IMPAIRMENT [None]
  - ROAD TRAFFIC ACCIDENT [None]
  - FEMUR FRACTURE [None]
  - TIBIA FRACTURE [None]
  - INSOMNIA [None]
